FAERS Safety Report 17444358 (Version 1)
Quarter: 2020Q1

REPORT INFORMATION
  Report Type: Spontaneous
  Country: US (occurrence: US)
  Receive Date: 20200221
  Receipt Date: 20200221
  Transmission Date: 20200409
  Serious: No
  Sender: FDA-Public Use
  Company Number: None

PATIENT
  Age: 92 Year
  Sex: Female

DRUGS (4)
  1. BEOVU [Suspect]
     Active Substance: BROLUCIZUMAB-DBLL
     Indication: CHOROIDAL NEOVASCULARISATION
     Dosage: ?          OTHER FREQUENCY:Q 4 WEEKS;OTHER ROUTE:INTRAVITREAL?
     Dates: start: 20200121, end: 20200121
  2. BEOVU [Suspect]
     Active Substance: BROLUCIZUMAB-DBLL
     Indication: AGE-RELATED MACULAR DEGENERATION
     Dosage: ?          OTHER FREQUENCY:Q 4 WEEKS;OTHER ROUTE:INTRAVITREAL?
     Dates: start: 20200121, end: 20200121
  3. BEOVU [Concomitant]
     Active Substance: BROLUCIZUMAB-DBLL
     Dates: start: 20191220, end: 20191220
  4. BEVACIZUMAB. [Concomitant]
     Active Substance: BEVACIZUMAB
     Dates: start: 20191115, end: 20191115

REACTIONS (1)
  - Retinal vasculitis [None]

NARRATIVE: CASE EVENT DATE: 20200121
